FAERS Safety Report 8168184-X (Version None)
Quarter: 2012Q1

REPORT INFORMATION
  Report Type: 
  Country: None (occurrence: None)
  Receive Date: 20120227
  Receipt Date: 20120223
  Transmission Date: 20120608
  Serious: Yes (Death, Disabling)
  Sender: FDA-Public Use
  Company Number: PHHY2012JP015872

PATIENT
  Age: 71 Year
  Sex: Female
  Weight: 55 kg

DRUGS (16)
  1. ZOMETA [Suspect]
     Indication: METASTASES TO BONE
     Dosage: 4 MG, PER ADMINISTRATION
     Route: 042
     Dates: start: 20070901, end: 20080801
  2. LANSOPRAZOLE [Concomitant]
     Dosage: 30 MG, UNK
     Route: 048
  3. OXYCONTIN [Concomitant]
     Dosage: 5 MG, UNK
     Route: 048
  4. NABOAL [Concomitant]
     Dosage: 37.5 MG, UNK
     Route: 048
  5. MAGNESIUM SULFATE [Concomitant]
     Dosage: 330 MG, UNK
     Route: 048
  6. FAMOTIDINE [Concomitant]
     Dosage: 20 MG, UNK
     Route: 048
  7. PRAMIPEXOLE DIHYDROCHLORIDE [Concomitant]
     Dosage: 0.5 MG, UNK
     Route: 048
  8. MUCOSTA [Concomitant]
     Dosage: 100 MG, UNK
     Route: 048
  9. ENSURE [Concomitant]
     Dosage: UNK UKN, UNK
     Route: 048
  10. METHYCOBAL [Concomitant]
     Dosage: 500 UG, UNK
     Route: 048
  11. SYMMETREL [Concomitant]
     Dosage: 50 MG, UNK
     Route: 048
  12. FERROUS CITRATE [Concomitant]
     Dosage: 50 MG, UNK
     Route: 048
  13. EC DOPARL [Concomitant]
     Dosage: UNK UKN, UNK
     Route: 048
  14. MYTELASE [Concomitant]
     Dosage: 10 MG, UNK
     Route: 048
  15. CYTOTEC [Concomitant]
     Dosage: 200 UG, UNK
     Route: 048
  16. LASIX [Concomitant]
     Dosage: 40 MG, UNK
     Route: 048

REACTIONS (4)
  - OSTEONECROSIS OF JAW [None]
  - NEOPLASM PROGRESSION [None]
  - NEOPLASM MALIGNANT [None]
  - TONGUE ULCERATION [None]
